FAERS Safety Report 5404938-8 (Version None)
Quarter: 2007Q3

REPORT INFORMATION
  Report Type: 
  Country: None (occurrence: None)
  Receive Date: 20070803
  Receipt Date: 20070724
  Transmission Date: 20080115
  Serious: Yes (Hospitalization)
  Sender: FDA-Public Use
  Company Number: JP-JNJFOC-20040200327

PATIENT
  Sex: Female
  Weight: 52 kg

DRUGS (16)
  1. REMICADE [Suspect]
     Route: 041
  2. REMICADE [Suspect]
     Route: 041
  3. REMICADE [Suspect]
     Route: 041
  4. REMICADE [Suspect]
     Route: 041
  5. REMICADE [Suspect]
     Route: 041
  6. REMICADE [Suspect]
     Indication: RHEUMATOID ARTHRITIS
     Route: 041
  7. RHEUMATREX [Concomitant]
     Route: 048
  8. RHEUMATREX [Concomitant]
     Route: 048
  9. RHEUMATREX [Concomitant]
     Indication: RHEUMATOID ARTHRITIS
     Route: 048
  10. PREDNISOLONE [Concomitant]
     Indication: RHEUMATOID ARTHRITIS
     Route: 048
     Dates: start: 20000422
  11. LOXONIN [Concomitant]
     Indication: RHEUMATOID ARTHRITIS
     Route: 048
     Dates: start: 20000114
  12. RIMATIL [Concomitant]
     Indication: RHEUMATOID ARTHRITIS
     Route: 048
     Dates: start: 20030110
  13. FOLIAMIN [Concomitant]
     Route: 048
     Dates: start: 20030809
  14. DIDRONEL [Concomitant]
     Route: 048
     Dates: start: 20020709
  15. FAMOTIDINE [Concomitant]
     Route: 048
     Dates: start: 20030110
  16. VITAMEDIN 50 [Concomitant]
     Route: 048

REACTIONS (1)
  - INTRACRANIAL HYPOTENSION [None]
